FAERS Safety Report 6684598-9 (Version None)
Quarter: 2010Q2

REPORT INFORMATION
  Report Type: 
  Country: None (occurrence: None)
  Receive Date: 20100416
  Receipt Date: 20100407
  Transmission Date: 20101027
  Serious: Yes (Life-Threatening)
  Sender: FDA-Public Use
  Company Number: ES-PFIZER INC-2010043776

PATIENT
  Age: 78 Year
  Sex: Male

DRUGS (13)
  1. ZARATOR [Suspect]
     Indication: ACUTE MYOCARDIAL INFARCTION
     Dosage: 80 MG, 1X/DAY
     Route: 048
     Dates: start: 20091127, end: 20091204
  2. METFORMIN HCL [Interacting]
     Indication: DIABETES MELLITUS
     Dosage: UNK MG, 3X/DAY
     Route: 048
     Dates: start: 20090101, end: 20100113
  3. CAPTOPRIL [Interacting]
     Indication: ACUTE MYOCARDIAL INFARCTION
     Dosage: UNK MG, 2X/DAY
     Route: 048
     Dates: start: 20091127, end: 20091204
  4. RANITIDINE [Interacting]
     Indication: PROPHYLAXIS AGAINST GASTROINTESTINAL ULCER
     Dosage: 300 MG, 1X/DAY
     Route: 048
     Dates: start: 20091127, end: 20100112
  5. CETIRIZINE [Interacting]
     Indication: URTICARIA
     Dosage: UNK MG, 2X/DAY
     Route: 048
     Dates: start: 20091204, end: 20091207
  6. ASPIRIN [Interacting]
     Indication: ACUTE MYOCARDIAL INFARCTION
     Dosage: 100 MG, 1X/DAY
     Route: 048
     Dates: start: 20091126
  7. COZAAR [Interacting]
     Indication: ACUTE MYOCARDIAL INFARCTION
     Dosage: UNK, 2X/DAY
     Route: 048
     Dates: start: 20091204, end: 20091205
  8. COZAAR [Interacting]
     Dosage: UNK, 2X/DAY
     Dates: start: 20091210, end: 20100112
  9. EMCONCOR COR [Interacting]
     Indication: ACUTE MYOCARDIAL INFARCTION
     Dosage: 2.5 MG, 1X/DAY
     Route: 048
     Dates: start: 20091210, end: 20100112
  10. EZETROL [Interacting]
     Indication: ACUTE MYOCARDIAL INFARCTION
     Dosage: 20 MG, 1X/DAY
     Route: 048
     Dates: start: 20091216, end: 20100112
  11. GLIMEPIRIDE [Interacting]
     Indication: DIABETES MELLITUS
     Dosage: 1 MG, 1X/DAY
     Route: 048
     Dates: start: 20091110, end: 20100112
  12. PLAVIX [Interacting]
     Indication: ACUTE MYOCARDIAL INFARCTION
     Dosage: 75 MG, 1X/DAY
     Route: 048
     Dates: start: 20091126, end: 20100112
  13. RONAME [Interacting]
     Indication: ACUTE MYOCARDIAL INFARCTION
     Dosage: 1 MG, 1X/DAY
     Route: 048
     Dates: start: 20090101, end: 20091214

REACTIONS (1)
  - NEUTROPENIA [None]
